FAERS Safety Report 16121029 (Version 1)
Quarter: 2019Q1

REPORT INFORMATION
  Report Type: Spontaneous
  Country: FR (occurrence: FR)
  Receive Date: 20190327
  Receipt Date: 20190327
  Transmission Date: 20190418
  Serious: Yes (Death, Hospitalization)
  Sender: FDA-Public Use
  Company Number: FR-TEVA-2019-FR-1029659

PATIENT
  Age: 15 Year
  Sex: Female
  Weight: 67 kg

DRUGS (4)
  1. ETOPOSIDE TEVA [Suspect]
     Active Substance: ETOPOSIDE
     Indication: EWING^S SARCOMA
     Dosage: 260 MILLIGRAM DAILY;
     Route: 042
     Dates: start: 20160916, end: 20160917
  2. DOXORUBICINE ACCORD [Suspect]
     Active Substance: DOXORUBICIN
     Indication: EWING^S SARCOMA
     Dosage: 36 MILLIGRAM DAILY;
     Route: 042
     Dates: start: 20160916, end: 20160917
  3. VINCRISTINE HOSPIRA [Suspect]
     Active Substance: VINCRISTINE
     Indication: EWING^S SARCOMA
     Dosage: 2 MILLIGRAM DAILY;
     Route: 042
     Dates: start: 20160916, end: 20160916
  4. IFOSFAMIDE EG [Suspect]
     Active Substance: IFOSFAMIDE
     Indication: EWING^S SARCOMA
     Dosage: 5200 MILLIGRAM DAILY;
     Route: 042
     Dates: start: 20160916, end: 20160918

REACTIONS (1)
  - Encephalopathy [Recovered/Resolved]

NARRATIVE: CASE EVENT DATE: 20160918
